FAERS Safety Report 10567774 (Version 1)
Quarter: 2014Q4

REPORT INFORMATION
  Report Type: Spontaneous
  Country: US (occurrence: None)
  Receive Date: 20141105
  Receipt Date: 20141105
  Transmission Date: 20150529
  Serious: Yes (Other)
  Sender: FDA-Public Use
  Company Number: None

PATIENT
  Age: 86 Year
  Sex: Male
  Weight: 70.31 kg

DRUGS (1)
  1. CIPROFLOXACIN. [Suspect]
     Active Substance: CIPROFLOXACIN
     Indication: BLOOD URINE PRESENT
     Dosage: 500 MG 10 TABLETS TWICE DAILY BY MOUTH
     Route: 048
     Dates: start: 20120322, end: 20120326

REACTIONS (6)
  - Balance disorder [None]
  - Paraesthesia [None]
  - Dizziness [None]
  - Asthenia [None]
  - Chromaturia [None]
  - Gait disturbance [None]

NARRATIVE: CASE EVENT DATE: 2013
